FAERS Safety Report 21788858 (Version 5)
Quarter: 2024Q4

REPORT INFORMATION
  Report Type: Spontaneous
  Country: US (occurrence: US)
  Receive Date: 20221228
  Receipt Date: 20241019
  Transmission Date: 20250114
  Serious: No
  Sender: SANOFI AVENTIS
  Company Number: US-SA-SAC20221226001477

PATIENT
  Age: 85 Year
  Sex: Female

DRUGS (3)
  1. DUPIXENT [Suspect]
     Active Substance: DUPILUMAB
     Indication: Dermatitis atopic
     Dosage: 300 MG, QOW
     Route: 058
     Dates: start: 202202
  2. COVID-19 VACCINE NOS [Suspect]
     Active Substance: COVID-19 VACCINE
     Indication: Immunisation
  3. INFLUENZA VIRUS VACCINE [Suspect]
     Active Substance: INFLUENZA VIRUS VACCINE

REACTIONS (12)
  - Fungal infection [Unknown]
  - Abdominal pain upper [Unknown]
  - Pain in extremity [Unknown]
  - Muscle spasms [Unknown]
  - Eczema [Unknown]
  - Neck pain [Unknown]
  - Urinary tract infection [Unknown]
  - Insomnia [Unknown]
  - Injection site pain [Unknown]
  - Dental operation [Unknown]
  - Eczema [Recovered/Resolved]
  - Rash pruritic [Recovered/Resolved]

NARRATIVE: CASE EVENT DATE: 20220101
